FAERS Safety Report 26098879 (Version 1)
Quarter: 2025Q4

REPORT INFORMATION
  Report Type: Spontaneous
  Country: EU (occurrence: EU)
  Receive Date: 20251127
  Receipt Date: 20251127
  Transmission Date: 20260118
  Serious: Yes (Death, Other)
  Sender: ALKEM
  Company Number: None

PATIENT
  Age: 69 Year
  Sex: Male

DRUGS (14)
  1. MYCOPHENOLATE MOFETIL [Suspect]
     Active Substance: MYCOPHENOLATE MOFETIL
     Indication: Immunosuppressant drug therapy
     Dosage: UNK
     Route: 065
  2. TACROLIMUS [Suspect]
     Active Substance: TACROLIMUS
     Indication: Immunosuppressant drug therapy
     Dosage: UNK
     Route: 065
  3. TOFACITINIB [Suspect]
     Active Substance: TOFACITINIB
     Indication: Immunosuppressant drug therapy
     Dosage: UNK
     Route: 065
  4. CYCLOSPORINE [Suspect]
     Active Substance: CYCLOSPORINE
     Indication: Immunosuppressant drug therapy
     Dosage: UNK
     Route: 065
  5. RITUXIMAB [Suspect]
     Active Substance: RITUXIMAB
     Indication: Immunosuppressant drug therapy
     Dosage: UNK
     Route: 065
  6. ACENOCOUMAROL [Concomitant]
     Active Substance: ACENOCOUMAROL
     Indication: Pulmonary embolism
     Dosage: UNK
     Route: 065
  7. ACENOCOUMAROL [Concomitant]
     Active Substance: ACENOCOUMAROL
     Indication: Deep vein thrombosis
  8. ERYTHROPOIETIN [Concomitant]
     Active Substance: ERYTHROPOIETIN
     Indication: Myelodysplastic syndrome
     Dosage: UNK
     Route: 065
  9. FOLIC ACID [Concomitant]
     Active Substance: FOLIC ACID
     Indication: Myelodysplastic syndrome
     Dosage: UNK
     Route: 065
  10. PREDNISONE [Concomitant]
     Active Substance: PREDNISONE
     Indication: Scleritis
     Dosage: UNK (LESS THAN 15 MILLIGRAM PER DAY)
     Route: 048
  11. PREDNISONE [Concomitant]
     Active Substance: PREDNISONE
     Indication: Iridocyclitis
     Dosage: UNK
     Route: 048
  12. PREDNISONE [Concomitant]
     Active Substance: PREDNISONE
     Indication: Neutrophilic dermatosis
     Dosage: UNK (DOSE INCREASED)
     Route: 065
  13. PREDNISONE [Concomitant]
     Active Substance: PREDNISONE
     Indication: Chondritis
     Dosage: UNK (DOSE INCREASED)
     Route: 065
  14. PREDNISONE [Concomitant]
     Active Substance: PREDNISONE
     Dosage: UNK (DOSE DECREASED)
     Route: 065

REACTIONS (3)
  - Urosepsis [Fatal]
  - Hypomagnesaemia [Unknown]
  - Off label use [Unknown]

NARRATIVE: CASE EVENT DATE: 20190101
